FAERS Safety Report 18049259 (Version 1)
Quarter: 2020Q3

REPORT INFORMATION
  Report Type: Spontaneous
  Country: US (occurrence: US)
  Receive Date: 20200721
  Receipt Date: 20200721
  Transmission Date: 20201103
  Serious: Yes (Death, Hospitalization)
  Sender: FDA-Public Use
  Company Number: None

PATIENT
  Age: 4 Year
  Sex: Female
  Weight: 24.6 kg

DRUGS (5)
  1. DEXAMETHASONE. [Suspect]
     Active Substance: DEXAMETHASONE
     Dates: end: 20200709
  2. CYTARABINE. [Suspect]
     Active Substance: CYTARABINE
     Dates: end: 20200701
  3. ONCASPAR [Suspect]
     Active Substance: PEGASPARGASE
     Dates: end: 20200705
  4. METHOTREXATE. [Suspect]
     Active Substance: METHOTREXATE
     Dates: end: 20200710
  5. VINCRISTINE SULFATE. [Suspect]
     Active Substance: VINCRISTINE SULFATE
     Dates: end: 20200702

REACTIONS (45)
  - Mucormycosis [None]
  - Tooth loss [None]
  - Infection [None]
  - Dyspnoea [None]
  - Renal replacement therapy [None]
  - Pulmonary necrosis [None]
  - Gastrointestinal necrosis [None]
  - Blood culture positive [None]
  - Tachypnoea [None]
  - Condition aggravated [None]
  - Acute kidney injury [None]
  - Nephropathy toxic [None]
  - Thrombosis [None]
  - Multiple organ dysfunction syndrome [None]
  - Haemodynamic instability [None]
  - Haemorrhage [None]
  - Veillonella infection [None]
  - Pleural effusion [None]
  - Pleural infection [None]
  - Hepatosplenomegaly [None]
  - Compartment syndrome [None]
  - Nasogastric output abnormal [None]
  - Pneumonia [None]
  - Necrosis [None]
  - Clostridium difficile infection [None]
  - Unresponsive to stimuli [None]
  - Enterocolitis [None]
  - Intracranial mass [None]
  - Ischaemia [None]
  - Pyrexia [None]
  - Capillary disorder [None]
  - Disseminated intravascular coagulation [None]
  - Pulmonary embolism [None]
  - Renal ischaemia [None]
  - Pulmonary mass [None]
  - Pulmonary hypoperfusion [None]
  - Gallbladder oedema [None]
  - Ascites [None]
  - Fungal infection [None]
  - Seizure [None]
  - Gallbladder necrosis [None]
  - Systemic mycosis [None]
  - Hyponatraemia [None]
  - Bruxism [None]
  - Blood lactic acid increased [None]

NARRATIVE: CASE EVENT DATE: 20200719
